FAERS Safety Report 15664626 (Version 1)
Quarter: 2018Q4

REPORT INFORMATION
  Report Type: Other
  Country: ES (occurrence: ES)
  Receive Date: 20181128
  Receipt Date: 20181128
  Transmission Date: 20190205
  Serious: Yes (Other)
  Sender: FDA-Public Use
  Company Number: ES-CELLTRION INC.-2018ES024023

PATIENT

DRUGS (2)
  1. REMSIMA [Suspect]
     Active Substance: INFLIXIMAB
     Indication: CROHN^S DISEASE
     Dosage: 5 MG/KG, CYCLIC
     Route: 041
     Dates: start: 20150810, end: 20150810
  2. REMSIMA [Suspect]
     Active Substance: INFLIXIMAB
     Dosage: 5 MG/KG, CYCLIC
     Route: 041
     Dates: start: 20180917, end: 20180917

REACTIONS (2)
  - Rash generalised [Recovering/Resolving]
  - Blepharitis [Recovered/Resolved]

NARRATIVE: CASE EVENT DATE: 20181022
